FAERS Safety Report 20406181 (Version 1)
Quarter: 2022Q1

REPORT INFORMATION
  Report Type: Spontaneous
  Country: FR (occurrence: FR)
  Receive Date: 20220131
  Receipt Date: 20220131
  Transmission Date: 20220424
  Serious: Yes (Congenital Anomaly, Other)
  Sender: FDA-Public Use
  Company Number: FR-ABBVIE-22K-056-4253273-00

PATIENT
  Age: 1 Month
  Sex: Male

DRUGS (1)
  1. VALPROATE SODIUM [Suspect]
     Active Substance: VALPROATE SODIUM
     Indication: Product used for unknown indication
     Route: 065

REACTIONS (22)
  - Talipes [Unknown]
  - Bronchiolitis [Unknown]
  - Rhinitis [Unknown]
  - Otitis media acute [Unknown]
  - Bronchitis [Unknown]
  - Ear infection [Unknown]
  - Conjunctivitis [Unknown]
  - Oropharyngeal pain [Unknown]
  - Otitis media [Unknown]
  - Nasopharyngitis [Unknown]
  - Pharyngitis [Unknown]
  - Middle ear effusion [Unknown]
  - Visual impairment [Unknown]
  - Lack of spontaneous speech [Unknown]
  - Aggression [Unknown]
  - Behaviour disorder [Unknown]
  - Depressed mood [Unknown]
  - Learning disorder [Unknown]
  - Educational problem [Unknown]
  - Memory impairment [Unknown]
  - Memory impairment [Unknown]
  - Social (pragmatic) communication disorder [Unknown]
